FAERS Safety Report 8144502-3 (Version None)
Quarter: 2012Q1

REPORT INFORMATION
  Report Type: 
  Country: None (occurrence: None)
  Receive Date: 20120217
  Receipt Date: 20120208
  Transmission Date: 20120608
  Serious: Yes (Other)
  Sender: FDA-Public Use
  Company Number: CA-JNJFOC-20120111176

PATIENT
  Sex: Female
  Weight: 57 kg

DRUGS (6)
  1. IMURAN [Concomitant]
     Route: 065
  2. OTHER THERAPEUTIC PRODUCT [Concomitant]
     Route: 065
  3. VITAMIN D [Concomitant]
     Route: 065
  4. CALCIUM [Concomitant]
     Route: 065
  5. PANTOPRAZOLE SODIUM [Concomitant]
     Route: 065
  6. REMICADE [Suspect]
     Indication: CROHN'S DISEASE
     Route: 042
     Dates: start: 20071011

REACTIONS (1)
  - LOWER GASTROINTESTINAL HAEMORRHAGE [None]
